FAERS Safety Report 25703977 (Version 1)
Quarter: 2025Q3

REPORT INFORMATION
  Report Type: Spontaneous
  Country: US (occurrence: US)
  Receive Date: 20250820
  Receipt Date: 20250820
  Transmission Date: 20251020
  Serious: Yes (Other)
  Sender: ASSERTIO THERAPEUTICS
  Company Number: US-ASSERTIO THERAPEUTICS, INC.-US-2025AST000352

PATIENT
  Age: 5 Year

DRUGS (2)
  1. SYMPAZAN [Suspect]
     Active Substance: CLOBAZAM
     Indication: Seizure
     Route: 065
  2. SYMPAZAN [Suspect]
     Active Substance: CLOBAZAM
     Route: 065

REACTIONS (2)
  - Seizure [Unknown]
  - Prescribed overdose [Unknown]
